FAERS Safety Report 24334767 (Version 1)
Quarter: 2024Q3

REPORT INFORMATION
  Report Type: Report from Study
  Country: US (occurrence: US)
  Receive Date: 20240918
  Receipt Date: 20240918
  Transmission Date: 20241016
  Serious: Yes (Other)
  Sender: ABBVIE
  Company Number: US-ABBVIE-5923991

PATIENT
  Sex: Male

DRUGS (2)
  1. SKYRIZI [Suspect]
     Active Substance: RISANKIZUMAB-RZAA
     Indication: Psoriasis
     Route: 058
  2. ASPIRIN [Suspect]
     Active Substance: ASPIRIN
     Indication: Pain
     Dosage: 650 ASPIRINS
     Route: 065

REACTIONS (5)
  - Neck surgery [Unknown]
  - Arthropod bite [Unknown]
  - Erythema [Unknown]
  - Psoriatic arthropathy [Recovering/Resolving]
  - Gastrointestinal disorder [Unknown]
